FAERS Safety Report 19559941 (Version 1)
Quarter: 2021Q3

REPORT INFORMATION
  Report Type: Spontaneous
  Country: US (occurrence: US)
  Receive Date: 20210714
  Receipt Date: 20210714
  Transmission Date: 20211014
  Serious: No
  Sender: FDA-Public Use
  Company Number: US-SK LIFE SCIENCE, INC-SKPVG-2020-000237

PATIENT

DRUGS (5)
  1. VIMPAT [Suspect]
     Active Substance: LACOSAMIDE
     Indication: PRODUCT USED FOR UNKNOWN INDICATION
     Dosage: 100 MILLIGRAM, HALF DAILY
     Route: 065
  2. GUAIFENESIN. [Concomitant]
     Active Substance: GUAIFENESIN
     Indication: HYPERTENSION
     Dosage: UNKNOWN
     Route: 065
  3. XCOPRI [Suspect]
     Active Substance: CENOBAMATE
     Indication: SEIZURE
     Dosage: 12.5 MG/25 MG TITRATION PACK
     Route: 048
     Dates: start: 2020, end: 2020
  4. XCOPRI [Suspect]
     Active Substance: CENOBAMATE
     Dosage: 50/100 MILLIGRAM TITRATION PACK
     Route: 048
     Dates: start: 2020, end: 2020
  5. XCOPRI [Suspect]
     Active Substance: CENOBAMATE
     Dosage: 100 MILLIGRAM, QD
     Route: 048
     Dates: start: 20200929

REACTIONS (5)
  - Product dose omission issue [Unknown]
  - Lethargy [Not Recovered/Not Resolved]
  - Dry mouth [Unknown]
  - Fatigue [Not Recovered/Not Resolved]
  - Somnolence [Not Recovered/Not Resolved]

NARRATIVE: CASE EVENT DATE: 2020
